FAERS Safety Report 4741113-4 (Version None)
Quarter: 2005Q3

REPORT INFORMATION
  Report Type: 
  Country: None (occurrence: None)
  Receive Date: 20050808
  Receipt Date: 20050722
  Transmission Date: 20060218
  Serious: No
  Sender: FDA-Public Use
  Company Number: USA0506100399

PATIENT
  Age: 52 Year
  Sex: Male

DRUGS (1)
  1. STRATTERA [Suspect]
     Dosage: 60 MG

REACTIONS (3)
  - FEELING HOT [None]
  - LIVER FUNCTION TEST ABNORMAL [None]
  - RASH ERYTHEMATOUS [None]
